FAERS Safety Report 19919400 (Version 1)
Quarter: 2021Q4

REPORT INFORMATION
  Report Type: Spontaneous
  Country: GB (occurrence: GB)
  Receive Date: 20211004
  Receipt Date: 20211004
  Transmission Date: 20220303
  Serious: Yes (Other)
  Sender: FDA-Public Use
  Company Number: None

PATIENT

DRUGS (2)
  1. PREDNISOLONE [Suspect]
     Active Substance: PREDNISOLONE
     Indication: Ill-defined disorder
     Dosage: 5 MG
     Route: 048
     Dates: start: 20210831, end: 20210904
  2. PREDNISOLONE [Suspect]
     Active Substance: PREDNISOLONE
     Indication: Viral infection

REACTIONS (5)
  - Palpitations [Recovered/Resolved]
  - Decreased appetite [Recovered/Resolved]
  - Mental fatigue [Recovered/Resolved]
  - Fatigue [Recovered/Resolved]
  - Muscular weakness [Recovered/Resolved]

NARRATIVE: CASE EVENT DATE: 20210902
